FAERS Safety Report 14559133 (Version 1)
Quarter: 2018Q1

REPORT INFORMATION
  Report Type: Spontaneous
  Country: FR (occurrence: FR)
  Receive Date: 20180221
  Receipt Date: 20180221
  Transmission Date: 20180509
  Serious: Yes (Hospitalization, Other)
  Sender: FDA-Public Use
  Company Number: FR-MYLANLABS-2018M1011357

PATIENT
  Age: 59 Year
  Sex: Male

DRUGS (4)
  1. VITAMIN B12 [Concomitant]
     Active Substance: CYANOCOBALAMIN
     Indication: PRODUCT USED FOR UNKNOWN INDICATION
     Dosage: UNK
     Route: 065
  2. FOLIC ACID. [Concomitant]
     Active Substance: FOLIC ACID
     Indication: SUPPLEMENTATION THERAPY
     Dosage: UNK
     Route: 065
  3. CISPLATIN. [Suspect]
     Active Substance: CISPLATIN
     Indication: LUNG CANCER METASTATIC
     Dosage: UNK
  4. PEMETREXED. [Suspect]
     Active Substance: PEMETREXED
     Indication: LUNG CANCER METASTATIC
     Dosage: UNK, CYCLE
     Route: 065
     Dates: start: 2013

REACTIONS (15)
  - Hyperchloraemia [Recovered/Resolved]
  - Pyrexia [Recovering/Resolving]
  - Nephropathy toxic [Recovered/Resolved]
  - Urinary retention [Unknown]
  - Urine viscosity increased [Unknown]
  - Haematotoxicity [Recovering/Resolving]
  - Pyelocaliectasis [Recovered/Resolved]
  - Thrombocytopenia [Recovered/Resolved]
  - Bladder dilatation [Recovered/Resolved]
  - Metabolic acidosis [Recovered/Resolved]
  - Neutropenia [Recovered/Resolved]
  - Bone marrow failure [Recovering/Resolving]
  - Bladder dysfunction [Unknown]
  - Acute kidney injury [Recovered/Resolved]
  - Hyponatraemia [Recovered/Resolved]

NARRATIVE: CASE EVENT DATE: 2013
